FAERS Safety Report 17493276 (Version 2)
Quarter: 2021Q1

REPORT INFORMATION
  Report Type: Spontaneous
  Country: US (occurrence: US)
  Receive Date: 20200303
  Receipt Date: 20210303
  Transmission Date: 20210419
  Serious: No
  Sender: FDA-Public Use
  Company Number: US-AMNEAL PHARMACEUTICALS-2019-IPXL-00673

PATIENT
  Age: 69 Year
  Sex: Male
  Weight: 83 kg

DRUGS (3)
  1. RYTARY [Suspect]
     Active Substance: CARBIDOPA\LEVODOPA
     Dosage: 23.75/95 MG, 4 CAPSULES, TID
     Route: 048
     Dates: start: 2019, end: 20190305
  2. RYTARY [Suspect]
     Active Substance: CARBIDOPA\LEVODOPA
     Indication: PARKINSON^S DISEASE
     Dosage: 23.75/95 MG, 2 CAPSULES, TID
     Route: 048
     Dates: start: 201902, end: 20190305
  3. RYTARY [Suspect]
     Active Substance: CARBIDOPA\LEVODOPA
     Dosage: 36.25/145 MG, 3 CAPSULES, 3X/DAY
     Route: 048
     Dates: start: 20201101, end: 20201103

REACTIONS (5)
  - Dizziness [Recovered/Resolved]
  - Tremor [Recovered/Resolved]
  - Dysstasia [Recovered/Resolved]
  - Drug ineffective [Recovered/Resolved]
  - Asthenia [Recovered/Resolved]

NARRATIVE: CASE EVENT DATE: 201902
